FAERS Safety Report 15578167 (Version 1)
Quarter: 2018Q4

REPORT INFORMATION
  Report Type: Spontaneous
  Country: US (occurrence: US)
  Receive Date: 20181101
  Receipt Date: 20181101
  Transmission Date: 20190205
  Serious: Yes (Life-Threatening, Other)
  Sender: FDA-Public Use
  Company Number: None

PATIENT
  Age: 63 Year
  Sex: Female
  Weight: 85.05 kg

DRUGS (8)
  1. LEXMARK 20 [Concomitant]
  2. BACLOFEN. [Concomitant]
     Active Substance: BACLOFEN
  3. GLIPIZIDE. [Concomitant]
     Active Substance: GLIPIZIDE
  4. ENDOCRINE [Concomitant]
  5. MARSHMALLOW ROOT [Concomitant]
  6. LICORICE ROOT [Concomitant]
     Active Substance: LICORICE
  7. NEOSPORIN PLUS PAIN RELIEF [Suspect]
     Active Substance: BACITRACIN ZINC\NEOMYCIN SULFATE\POLYMYXIN B SULFATE\PRAMOXINE HYDROCHLORIDE
     Indication: SCRATCH
     Dosage: ?          QUANTITY:1 DROP(S);?
     Route: 061
     Dates: start: 20180917, end: 20180921
  8. NEXIUM [Concomitant]
     Active Substance: ESOMEPRAZOLE MAGNESIUM

REACTIONS (6)
  - Scab [None]
  - Unevaluable event [None]
  - Lip swelling [None]
  - Chapped lips [None]
  - Throat tightness [None]
  - Oral discomfort [None]

NARRATIVE: CASE EVENT DATE: 20180917
